FAERS Safety Report 7441468-6 (Version None)
Quarter: 2011Q2

REPORT INFORMATION
  Report Type: 
  Country: None (occurrence: None)
  Receive Date: 20110426
  Receipt Date: 20110426
  Transmission Date: 20111010
  Serious: Yes (Death, Hospitalization)
  Sender: FDA-Public Use
  Company Number: None

PATIENT
  Sex: Female
  Weight: 74 kg

DRUGS (2)
  1. CARBOPLATIN [Suspect]
     Dosage: 322 MG
     Dates: end: 20110414
  2. TAXOL [Suspect]
     Dosage: 150 MG
     Dates: end: 20110414

REACTIONS (13)
  - DYSPNOEA EXERTIONAL [None]
  - HYPOAESTHESIA [None]
  - DRUG DOSE OMISSION [None]
  - SKIN ULCER [None]
  - TREATMENT NONCOMPLIANCE [None]
  - FEELING ABNORMAL [None]
  - OEDEMA PERIPHERAL [None]
  - THROMBOCYTOPENIA [None]
  - CELLULITIS [None]
  - MYOCARDIAL INFARCTION [None]
  - ATRIAL THROMBOSIS [None]
  - DRUG INTOLERANCE [None]
  - COGNITIVE DISORDER [None]
